FAERS Safety Report 10973697 (Version 1)
Quarter: 2015Q1

REPORT INFORMATION
  Report Type: Spontaneous
  Country: US (occurrence: None)
  Receive Date: 20150226
  Receipt Date: 20150226
  Transmission Date: 20150721
  Serious: No
  Sender: FDA-Public Use
  Company Number: TPA2009A02739

PATIENT
  Age: 68 Year
  Sex: Male
  Weight: 107.96 kg

DRUGS (7)
  1. ENALAPRIL [Concomitant]
     Active Substance: ENALAPRIL
  2. OMEPRAZOLE. [Concomitant]
     Active Substance: OMEPRAZOLE
  3. INDOMETHACIN (INDOMETACIN) [Concomitant]
     Active Substance: INDOMETHACIN
  4. ULORIC [Suspect]
     Active Substance: FEBUXOSTAT
     Indication: GOUT
     Dosage: 1 IN 1 D
     Route: 048
     Dates: start: 20090909, end: 20090913
  5. LIPITOR [Concomitant]
     Active Substance: ATORVASTATIN CALCIUM
  6. COREG [Concomitant]
     Active Substance: CARVEDILOL
  7. ASPIRIN (ACETYLSALICYLIC ACID) [Concomitant]
     Active Substance: ASPIRIN

REACTIONS (8)
  - Gait disturbance [None]
  - Limb injury [None]
  - Contusion [None]
  - Pain in extremity [None]
  - Oedema peripheral [None]
  - Arthralgia [None]
  - Joint swelling [None]
  - Tendon injury [None]

NARRATIVE: CASE EVENT DATE: 20090910
